FAERS Safety Report 15770197 (Version 1)
Quarter: 2018Q4

REPORT INFORMATION
  Report Type: Spontaneous
  Country: US (occurrence: US)
  Receive Date: 20181228
  Receipt Date: 20181228
  Transmission Date: 20190205
  Serious: No
  Sender: FDA-Public Use
  Company Number: US-PFIZER INC-2018522547

PATIENT

DRUGS (1)
  1. ALDACTONE [Suspect]
     Active Substance: SPIRONOLACTONE
     Indication: HYPERTENSION
     Dosage: 75 MG, 2X/DAY
     Dates: start: 201209, end: 20180118

REACTIONS (4)
  - Nipple enlargement [Not Recovered/Not Resolved]
  - Nipple pain [Not Recovered/Not Resolved]
  - Gynaecomastia [Not Recovered/Not Resolved]
  - Hair growth abnormal [Unknown]

NARRATIVE: CASE EVENT DATE: 201710
